FAERS Safety Report 9391828 (Version 2)
Quarter: 2015Q2

REPORT INFORMATION
  Report Type: Report from Study
  Country: JP (occurrence: JP)
  Receive Date: 20130709
  Receipt Date: 20150407
  Transmission Date: 20150821
  Serious: Yes (Death, Other)
  Sender: FDA-Public Use
  Company Number: JP-009507513-1307JPN003889

PATIENT
  Age: 39 Year
  Sex: Female
  Weight: 49 kg

DRUGS (8)
  1. TEMOZOLOMIDE. [Suspect]
     Active Substance: TEMOZOLOMIDE
     Dosage: 75 MG/M2, QD
     Route: 041
     Dates: start: 20101111, end: 20101112
  2. LACTEC [Concomitant]
     Active Substance: CALCIUM CHLORIDE ANHYDROUS\POTASSIUM CHLORIDE\SODIUM CHLORIDE\SODIUM LACTATE
     Indication: PROPHYLAXIS
     Dosage: DAILY DOSAGE UNKNOWN
     Route: 041
  3. RINDERON (BETAMETHASONE SODIUM PHOSPHATE) [Concomitant]
     Active Substance: BETAMETHASONE SODIUM PHOSPHATE
     Indication: PROPHYLAXIS
     Dosage: DAILY DOSAGE UNKNOWN
     Route: 041
     Dates: end: 20101115
  4. TEMOZOLOMIDE. [Suspect]
     Active Substance: TEMOZOLOMIDE
     Indication: GLIOBLASTOMA MULTIFORME
     Dosage: 75 MG/M2, QD
     Route: 041
     Dates: start: 20101022, end: 20101107
  5. BAKTAR [Concomitant]
     Active Substance: SULFAMETHOXAZOLE\TRIMETHOPRIM
     Indication: ANTIFUNGAL PROPHYLAXIS
     Dosage: DAILY DOSAGE UNKNOWN; FORMULATION: POR
     Route: 048
     Dates: start: 20101109, end: 20101207
  6. ELEMENMIC [Concomitant]
     Active Substance: CUPRIC SULFATE\FERRIC CHLORIDE\MANGANESE CHLORIDE\POTASSIUM IODIDE\ZINC SULFATE
     Indication: PROPHYLAXIS
     Dosage: DAILY DOSAGE UNKNOWN
     Route: 041
  7. ZANTAC [Suspect]
     Active Substance: RANITIDINE HYDROCHLORIDE
     Indication: PROPHYLAXIS
     Dosage: DAILY DOSAGE UNKNOWN
     Route: 041
     Dates: end: 20101110
  8. FULCALIQ [Concomitant]
     Active Substance: AMINO ACIDS\CARBOHYDRATES\ELECTROLYTES NOS\VITAMINS
     Indication: PROPHYLAXIS
     Dosage: DAILY DOSAGE UNKNOWN
     Route: 041

REACTIONS (4)
  - Disease progression [Fatal]
  - Drug eruption [Recovering/Resolving]
  - Vomiting [Recovered/Resolved]
  - Drug eruption [Recovering/Resolving]

NARRATIVE: CASE EVENT DATE: 20101022
